FAERS Safety Report 10692054 (Version 1)
Quarter: 2015Q1

REPORT INFORMATION
  Report Type: Other
  Country: IN (occurrence: IN)
  Receive Date: 20150106
  Receipt Date: 20150106
  Transmission Date: 20150720
  Serious: Yes (Life-Threatening)
  Sender: FDA-Public Use
  Company Number: IN-LUPIN PHARMACEUTICALS INC.-2014-01904

PATIENT
  Age: 35 Year
  Sex: Female

DRUGS (2)
  1. AMLODIPINE [Suspect]
     Active Substance: AMLODIPINE BESYLATE
     Indication: SUICIDAL IDEATION
     Dosage: 100 TABLETS EACH OF 10 MG
     Route: 048
  2. ATENOLOL. [Suspect]
     Active Substance: ATENOLOL
     Indication: SUICIDAL IDEATION
     Dosage: 100 TABLETS OF 50 MG
     Route: 048

REACTIONS (8)
  - Intentional overdose [Unknown]
  - Metabolic acidosis [Recovering/Resolving]
  - Altered state of consciousness [Recovering/Resolving]
  - Atrioventricular block second degree [Recovering/Resolving]
  - Tachycardia [Recovering/Resolving]
  - Suicide attempt [Unknown]
  - Tachypnoea [Recovering/Resolving]
  - Hypotension [Recovering/Resolving]
